FAERS Safety Report 15720358 (Version 1)
Quarter: 2018Q4

REPORT INFORMATION
  Report Type: Spontaneous
  Country: US (occurrence: US)
  Receive Date: 20181213
  Receipt Date: 20181213
  Transmission Date: 20190205
  Serious: Yes (Hospitalization)
  Sender: FDA-Public Use
  Company Number: US-MYLANLABS-2018M1090920

PATIENT
  Age: 70 Year
  Sex: Male

DRUGS (1)
  1. DOXORUBICIN [Suspect]
     Active Substance: DOXORUBICIN
     Indication: HEPATOCELLULAR CARCINOMA
     Dosage: LC BEAD (100-300 MICRON) LOADED WITH DOXORUBICIN; RECEIVED DRUG ELUTING BEADS TRANSARTERIAL CHEMO...
     Route: 013

REACTIONS (4)
  - Hypoxia [Recovered/Resolved]
  - Pleural effusion [Unknown]
  - Pneumonitis [Recovering/Resolving]
  - Condition aggravated [Unknown]
